FAERS Safety Report 20696329 (Version 1)
Quarter: 2022Q2

REPORT INFORMATION
  Report Type: Spontaneous
  Country: US (occurrence: US)
  Receive Date: 20220411
  Receipt Date: 20220411
  Transmission Date: 20220720
  Serious: No
  Sender: FDA-Public Use
  Company Number: US-PFIZER INC-202101121131

PATIENT
  Age: 72 Year
  Sex: Female
  Weight: 97.506 kg

DRUGS (17)
  1. IBRANCE [Suspect]
     Active Substance: PALBOCICLIB
     Indication: Breast cancer
     Dosage: 100 MG, CYCLIC (DAILY ON DAYS 1 THROUGH 21, THEN 7 DAYS OFF)
     Route: 048
     Dates: start: 20210806
  2. IBRANCE [Suspect]
     Active Substance: PALBOCICLIB
     Dosage: 75 MG , CYCLIC ( DAILY 21 DAYS THEN 7 DAYS OFF)
     Route: 048
     Dates: start: 20210806
  3. ALBUTEROL [Concomitant]
     Active Substance: ALBUTEROL
  4. BOTOX [Concomitant]
     Active Substance: ONABOTULINUMTOXINA
  5. CALCIUM CARBONATE [Concomitant]
     Active Substance: CALCIUM CARBONATE
  6. CETIRIZINE [Concomitant]
     Active Substance: CETIRIZINE HYDROCHLORIDE
  7. COQ10 EXCEL [Concomitant]
  8. DIAZEPAM [Concomitant]
     Active Substance: DIAZEPAM
  9. FASLODEX [Concomitant]
     Active Substance: FULVESTRANT
  10. HIZENTRA [Concomitant]
     Active Substance: HUMAN IMMUNOGLOBULIN G
  11. PRILOSEC [Concomitant]
     Active Substance: OMEPRAZOLE MAGNESIUM
  12. SYMBICORT [Concomitant]
     Active Substance: BUDESONIDE\FORMOTEROL FUMARATE DIHYDRATE
  13. TYLENOL [Concomitant]
     Active Substance: ACETAMINOPHEN
  14. VITAMIN D3 [Concomitant]
     Active Substance: CHOLECALCIFEROL
  15. XOLAIR [Concomitant]
     Active Substance: OMALIZUMAB
  16. ZOLPIDEM [Concomitant]
     Active Substance: ZOLPIDEM TARTRATE
  17. VITAMINS [Concomitant]
     Active Substance: VITAMINS

REACTIONS (2)
  - Fatigue [Unknown]
  - Bone pain [Unknown]

NARRATIVE: CASE EVENT DATE: 20210101
